FAERS Safety Report 6262104-0 (Version None)
Quarter: 2009Q3

REPORT INFORMATION
  Report Type: 
  Country: None (occurrence: None)
  Receive Date: 20090707
  Receipt Date: 20090707
  Transmission Date: 20100115
  Serious: Yes (Hospitalization)
  Sender: FDA-Public Use
  Company Number: None

PATIENT
  Age: 43 Year
  Sex: Male
  Weight: 81.6475 kg

DRUGS (1)
  1. BACTRIM [Suspect]
     Indication: SINUSITIS
     Dosage: 800-160MG I TOOK ONCE DOES PO
     Route: 048
     Dates: start: 20090608, end: 20090608

REACTIONS (13)
  - BLISTER [None]
  - DYSPNOEA [None]
  - FEELING HOT [None]
  - GENITAL ERYTHEMA [None]
  - LIP BLISTER [None]
  - PENILE EXFOLIATION [None]
  - PENILE SWELLING [None]
  - PENIS DISORDER [None]
  - PRURITUS [None]
  - PRURITUS GENITAL [None]
  - RASH MACULAR [None]
  - SCROTAL ERYTHEMA [None]
  - SKIN EXFOLIATION [None]
